FAERS Safety Report 20852603 (Version 2)
Quarter: 2022Q2

REPORT INFORMATION
  Report Type: Spontaneous
  Country: JP (occurrence: JP)
  Receive Date: 20220520
  Receipt Date: 20220608
  Transmission Date: 20220720
  Serious: Yes (Hospitalization, Other)
  Sender: FDA-Public Use
  Company Number: JP-ONO-2022JP013574

PATIENT
  Age: 53 Year
  Sex: Female
  Weight: 58 kg

DRUGS (3)
  1. OPDIVO [Suspect]
     Active Substance: NIVOLUMAB
     Indication: Gastric cancer
     Dosage: UNK
     Route: 041
     Dates: start: 202112
  2. GIMERACIL\OTERACIL\TEGAFUR [Concomitant]
     Active Substance: GIMERACIL\OTERACIL\TEGAFUR
     Indication: Gastric cancer
     Dosage: UNK
     Route: 065
     Dates: start: 202107
  3. OXALIPLATIN [Concomitant]
     Active Substance: OXALIPLATIN
     Indication: Gastric cancer
     Dosage: UNK
     Route: 065
     Dates: start: 202107

REACTIONS (6)
  - Blood corticotrophin decreased [Recovering/Resolving]
  - Secondary adrenocortical insufficiency [Recovering/Resolving]
  - Hyperthyroidism [Recovering/Resolving]
  - Hypothalamo-pituitary disorder [Unknown]
  - General physical condition abnormal [Unknown]
  - Hypophagia [Unknown]

NARRATIVE: CASE EVENT DATE: 20220201
